FAERS Safety Report 4871055-5 (Version None)
Quarter: 2005Q4

REPORT INFORMATION
  Report Type: 
  Country: None (occurrence: None)
  Receive Date: 20051229
  Receipt Date: 20051215
  Transmission Date: 20060501
  Serious: Yes (Life-Threatening, Hospitalization)
  Sender: FDA-Public Use
  Company Number: ES200512002930

PATIENT
  Age: 75 Year
  Sex: Female
  Weight: 64 kg

DRUGS (4)
  1. GEMZAR [Suspect]
     Indication: LUNG NEOPLASM MALIGNANT
     Dosage: 1.2 G, OTHER INTRAVENOUS
     Route: 042
     Dates: start: 20050831, end: 20050831
  2. NAVELBINE [Concomitant]
  3. MORPHINE SULFATE [Concomitant]
  4. DUPHALAC   /NET/ (LACTULOSE) [Concomitant]

REACTIONS (4)
  - CARDIOVASCULAR DISORDER [None]
  - HEPATITIS [None]
  - LACTIC ACIDOSIS [None]
  - PNEUMONITIS [None]
